FAERS Safety Report 8120982-4 (Version None)
Quarter: 2012Q1

REPORT INFORMATION
  Report Type: 
  Country: None (occurrence: None)
  Receive Date: 20120208
  Receipt Date: 20120202
  Transmission Date: 20120608
  Serious: Yes (Other)
  Sender: FDA-Public Use
  Company Number: US-BAYER-2012-011611

PATIENT
  Sex: Female

DRUGS (2)
  1. YAZ [Suspect]
     Dosage: UNK
     Dates: start: 20090101, end: 20090301
  2. DROSPIRENONE AND ETHINYL ESTRADIOL [Suspect]
     Dosage: UNK
     Dates: start: 20090301, end: 20091101

REACTIONS (6)
  - DEPRESSION [None]
  - INJURY [None]
  - PANCREATITIS [None]
  - NERVOUSNESS [None]
  - EMOTIONAL DISTRESS [None]
  - FEAR OF DEATH [None]
